FAERS Safety Report 6252117-7 (Version None)
Quarter: 2009Q2

REPORT INFORMATION
  Report Type: 
  Country: None (occurrence: None)
  Receive Date: 20090630
  Receipt Date: 20061009
  Transmission Date: 20091009
  Serious: Yes (Hospitalization)
  Sender: FDA-Public Use
  Company Number: US-ROCHE-639074

PATIENT
  Sex: Male

DRUGS (6)
  1. ENFUVIRTIDE [Suspect]
     Route: 065
     Dates: start: 20050516, end: 20071201
  2. NORVIR [Concomitant]
     Dosage: FREQUENCY REPORTED AS QD
     Dates: start: 20050516, end: 20080814
  3. LEXIVA [Concomitant]
     Dosage: FREQUENCY WAS REPORTED QD
     Dates: start: 20050516, end: 20080814
  4. TRIZIVIR [Concomitant]
     Dates: start: 20050516, end: 20080814
  5. BACTRIM [Concomitant]
     Dates: start: 20071201, end: 20080414
  6. BACTRIM [Concomitant]
     Dosage: FREQUENCY REPORTED AS QD
     Dates: end: 20080814

REACTIONS (1)
  - ISOSPORIASIS [None]
